FAERS Safety Report 18472494 (Version 1)
Quarter: 2020Q4

REPORT INFORMATION
  Report Type: Spontaneous
  Country: BG (occurrence: BG)
  Receive Date: 20201106
  Receipt Date: 20201106
  Transmission Date: 20210114
  Serious: Yes (Other)
  Sender: FDA-Public Use
  Company Number: BG-VISTAPHARM, INC.-VER202010-001919

PATIENT
  Weight: 1.8 kg

DRUGS (5)
  1. FRAXIPARIN [Suspect]
     Active Substance: NADROPARIN CALCIUM
     Dosage: UNKNOWN
     Route: 064
  2. PREDNISOLONE. [Suspect]
     Active Substance: PREDNISOLONE
     Dosage: UNKNOWN
     Route: 064
  3. IMMUNOGLOBULINS, INTRAVENOUS [IVIG] [Suspect]
     Active Substance: HUMAN IMMUNOGLOBULIN G
     Dosage: UNKNOWN
     Route: 064
  4. ASPIRIN. [Suspect]
     Active Substance: ASPIRIN
     Dosage: UNKNOWN
     Route: 064
  5. METHYLPREDNISOLONE. [Suspect]
     Active Substance: METHYLPREDNISOLONE
     Dosage: UNKNOWN
     Route: 064

REACTIONS (2)
  - Foetal distress syndrome [Recovered/Resolved]
  - Foetal exposure during pregnancy [Unknown]
